FAERS Safety Report 22343089 (Version 1)
Quarter: 2023Q2

REPORT INFORMATION
  Report Type: Spontaneous
  Country: HR (occurrence: HR)
  Receive Date: 20230519
  Receipt Date: 20230519
  Transmission Date: 20230722
  Serious: Yes (Other)
  Sender: FDA-Public Use
  Company Number: None

PATIENT
  Age: 15 Year
  Sex: Male

DRUGS (1)
  1. CLONAZEPAM [Suspect]
     Active Substance: CLONAZEPAM
     Dosage: TOOK 3 TABLETS
     Route: 048
     Dates: start: 20230329, end: 20230329

REACTIONS (3)
  - Suicide attempt [Unknown]
  - Bradykinesia [Unknown]
  - Somnolence [Unknown]

NARRATIVE: CASE EVENT DATE: 20230329
